FAERS Safety Report 5065900-0 (Version None)
Quarter: 2006Q3

REPORT INFORMATION
  Report Type: 
  Country: None (occurrence: None)
  Receive Date: 20060728
  Receipt Date: 20060728
  Transmission Date: 20061208
  Serious: Yes (Death, Other)
  Sender: FDA-Public Use
  Company Number: None

PATIENT
  Age: 14 Year
  Sex: Male
  Weight: 68.0396 kg

DRUGS (1)
  1. ADDERALL XR 10 [Suspect]

REACTIONS (2)
  - ARRHYTHMOGENIC RIGHT VENTRICULAR DYSPLASIA [None]
  - FALL [None]
